FAERS Safety Report 13487811 (Version 1)
Quarter: 2017Q2

REPORT INFORMATION
  Report Type: Spontaneous
  Country: US (occurrence: US)
  Receive Date: 20170426
  Receipt Date: 20170426
  Transmission Date: 20170830
  Serious: No
  Sender: FDA-Public Use
  Company Number: US-ALKERMES INC.-ALK-2016-000810

PATIENT
  Age: 25 Year
  Sex: Female
  Weight: 65.76 kg

DRUGS (3)
  1. VIVITROL [Suspect]
     Active Substance: NALTREXONE
     Indication: DRUG USE DISORDER
     Dosage: 380 MG, QMO
     Route: 030
     Dates: start: 20160119
  2. VISTARIL [Concomitant]
     Active Substance: HYDROXYZINE PAMOATE
     Indication: ANXIETY
     Dosage: 4 DF, QD
     Route: 048
     Dates: start: 20160211
  3. SEROQUEL [Concomitant]
     Active Substance: QUETIAPINE FUMARATE
     Indication: BIPOLAR DISORDER
     Dosage: 200 MG, QD
     Route: 048
     Dates: start: 20160229

REACTIONS (3)
  - Drug dose omission [None]
  - Withdrawal syndrome [Recovered/Resolved]
  - Imprisonment [Recovered/Resolved]

NARRATIVE: CASE EVENT DATE: 201603
